FAERS Safety Report 5669756-4 (Version None)
Quarter: 2008Q1

REPORT INFORMATION
  Report Type: 
  Country: None (occurrence: None)
  Receive Date: 20080313
  Receipt Date: 20080313
  Transmission Date: 20080703
  Serious: Yes (Hospitalization)
  Sender: FDA-Public Use
  Company Number: None

PATIENT
  Sex: Male
  Weight: 71 kg

DRUGS (5)
  1. DOCETAXEL [Suspect]
     Indication: OESOPHAGEAL CANCER METASTATIC
     Dosage: 30MG/M2 IV BOLUS
     Route: 040
     Dates: start: 20070228, end: 20080205
  2. BEVACIZUMAB D1 OF 21D CYCLE [Suspect]
     Indication: OESOPHAGEAL CANCER METASTATIC
     Dosage: 10MG/M2 IV BOLUS
     Route: 040
     Dates: start: 20070228, end: 20071106
  3. IRINOTECAN HCL [Suspect]
     Indication: OESOPHAGEAL CANCER METASTATIC
     Dosage: 50MG/M2 IV BOLUS  : DOSE REDUCED TO 37.5MGM2
     Route: 040
     Dates: start: 20070228, end: 20080205
  4. IRINOTECAN HCL [Suspect]
     Indication: OESOPHAGEAL CANCER METASTATIC
     Dosage: 50MG/M2 IV BOLUS  : DOSE REDUCED TO 37.5MGM2
     Route: 040
     Dates: start: 20071106
  5. CISPLATIN [Suspect]
     Indication: OESOPHAGEAL CANCER METASTATIC
     Dosage: 25MG/M2 IV BOLUS
     Route: 040
     Dates: start: 20070228, end: 20071231

REACTIONS (4)
  - MALIGNANT NEOPLASM PROGRESSION [None]
  - OESOPHAGEAL CANCER METASTATIC [None]
  - PNEUMONIA [None]
  - STAPHYLOCOCCAL INFECTION [None]
